FAERS Safety Report 4370448-2 (Version None)
Quarter: 2004Q2

REPORT INFORMATION
  Report Type: 
  Country: None (occurrence: None)
  Receive Date: 20040603
  Receipt Date: 20030626
  Transmission Date: 20050107
  Serious: Yes (Other)
  Sender: FDA-Public Use
  Company Number: US-BRISTOL-MYERS SQUIBB COMPANY-12311833

PATIENT
  Age: 14 Year
  Sex: Female
  Weight: 61 kg

DRUGS (4)
  1. ABILIFY [Suspect]
     Indication: BIPOLAR DISORDER
     Dosage: STARTED ON 5MG 04-24/DOSAGE WAS INCREASED/DRUG STOPPED 05-23/RESTARTED 06-16/STOPPED 06-25
     Route: 048
     Dates: start: 20030424, end: 20030625
  2. ABILIFY [Suspect]
     Indication: PSYCHOTIC DISORDER
     Dosage: STARTED ON 5MG 04-24/DOSAGE WAS INCREASED/DRUG STOPPED 05-23/RESTARTED 06-16/STOPPED 06-25
     Route: 048
     Dates: start: 20030424, end: 20030625
  3. LAMICTAL [Concomitant]
     Dosage: STARTED ON 25MG ON 08-MAY/INCREASED TO 50MG ON 15-MAY-2003.
     Dates: start: 20030508, end: 20030522
  4. LITHIUM CARBONATE [Concomitant]
     Dosage: 300 MG QAM/600 MG QHS
     Dates: start: 20030424

REACTIONS (4)
  - LEUKOPENIA [None]
  - LYMPHADENOPATHY [None]
  - PLATELET COUNT DECREASED [None]
  - PYREXIA [None]
